FAERS Safety Report 9126616 (Version 1)
Quarter: 2013Q1

REPORT INFORMATION
  Report Type: Spontaneous
  Country: US (occurrence: US)
  Receive Date: 20130121
  Receipt Date: 20130121
  Transmission Date: 20140127
  Serious: No
  Sender: FDA-Public Use
  Company Number: US-PFIZER INC-2013021899

PATIENT
  Age: 66 Year
  Sex: Female
  Weight: 57.6 kg

DRUGS (4)
  1. XANAX [Suspect]
     Indication: ANXIETY
     Dosage: 0.5 MG, UNK
  2. XANAX [Suspect]
     Indication: NERVOUSNESS
  3. KALBITOR [Suspect]
     Indication: HEREDITARY ANGIOEDEMA
     Dosage: 30 MG, AS NEEDED
     Route: 058
     Dates: start: 20120612
  4. HYDROCODONE [Concomitant]
     Dosage: UNK

REACTIONS (2)
  - Nervousness [Recovering/Resolving]
  - Chills [Recovering/Resolving]
